FAERS Safety Report 10517317 (Version 1)
Quarter: 2014Q4

REPORT INFORMATION
  Report Type: Spontaneous
  Country: US (occurrence: None)
  Receive Date: 20141003
  Receipt Date: 20141003
  Transmission Date: 20150528
  Serious: Yes (Hospitalization)
  Sender: FDA-Public Use
  Company Number: 1393593

PATIENT
  Age: 58 Year
  Sex: Female

DRUGS (2)
  1. COPEGUS [Suspect]
     Active Substance: RIBAVIRIN
     Indication: HEPATITIS C
     Dosage: DIVIDED DOSES 200/400 (600 MG, 1 IN 1 D) UNKNOWN
     Dates: start: 201302, end: 201307
  2. PEGASYS [Suspect]
     Active Substance: PEGINTERFERON ALFA-2A
     Indication: HEPATITIS C
     Route: 058
     Dates: start: 201302, end: 201307

REACTIONS (3)
  - Haemoglobin decreased [None]
  - Dyspnoea [None]
  - Pneumonia [None]
